FAERS Safety Report 11696567 (Version 1)
Quarter: 2015Q4

REPORT INFORMATION
  Report Type: Spontaneous
  Country: CA (occurrence: CA)
  Receive Date: 20151104
  Receipt Date: 20151104
  Transmission Date: 20160304
  Serious: Yes (Life-Threatening, Hospitalization)
  Sender: FDA-Public Use
  Company Number: CA-TEVA-605364ACC

PATIENT
  Age: 88 Year
  Sex: Female
  Weight: 66 kg

DRUGS (9)
  1. CITALOPRAM [Concomitant]
     Active Substance: CITALOPRAM HYDROBROMIDE
  2. PANTOPRAZOLE [Concomitant]
     Active Substance: PANTOPRAZOLE SODIUM
  3. VALSARTAN. [Concomitant]
     Active Substance: VALSARTAN
  4. PREMARIN [Concomitant]
     Active Substance: ESTROGENS, CONJUGATED
  5. CLONIDINE. [Concomitant]
     Active Substance: CLONIDINE
  6. CIPROFLOXACIN. [Suspect]
     Active Substance: CIPROFLOXACIN
     Indication: URINARY TRACT INFECTION
     Dosage: .25 DOSAGE FORMS DAILY;
     Route: 048
  7. ASAPHEN [Concomitant]
     Active Substance: ASPIRIN
  8. CLONAZEPAM. [Concomitant]
     Active Substance: CLONAZEPAM
  9. DILTIAZEM [Concomitant]
     Active Substance: DILTIAZEM

REACTIONS (6)
  - Cough [Recovering/Resolving]
  - General physical health deterioration [Recovering/Resolving]
  - Lung disorder [Recovering/Resolving]
  - Productive cough [Recovering/Resolving]
  - Bronchiectasis [Recovering/Resolving]
  - Dyspnoea [Recovering/Resolving]
